FAERS Safety Report 17373105 (Version 1)
Quarter: 2020Q1

REPORT INFORMATION
  Report Type: Spontaneous
  Country: US (occurrence: US)
  Receive Date: 20200205
  Receipt Date: 20200205
  Transmission Date: 20200409
  Serious: Yes (Death)
  Sender: FDA-Public Use
  Company Number: US-TEVA-2020-US-1179113

PATIENT
  Sex: Female

DRUGS (1)
  1. HYDROXYUREA. [Suspect]
     Active Substance: HYDROXYUREA
     Route: 065

REACTIONS (1)
  - Leukaemia [Fatal]
